FAERS Safety Report 8852162 (Version 3)
Quarter: 2012Q4

REPORT INFORMATION
  Report Type: Report from Study
  Country: CA (occurrence: CA)
  Receive Date: 20121022
  Receipt Date: 20121213
  Transmission Date: 20130627
  Serious: Yes (Hospitalization)
  Sender: FDA-Public Use
  Company Number: CA-ABBOTT-12P-028-0995192-00

PATIENT
  Age: 50 Year
  Sex: Male

DRUGS (10)
  1. HUMIRA [Suspect]
     Indication: PSORIASIS
     Route: 058
     Dates: start: 20090605
  2. PAXIL [Concomitant]
     Indication: DEPRESSION
     Dates: start: 2003
  3. CRESTOR [Concomitant]
     Indication: HYPERLIPIDAEMIA
     Dates: start: 2003
  4. ALTACE [Concomitant]
     Indication: HYPERTENSION
     Dosage: 5/12.5 mg
     Dates: start: 2003
  5. ATENOLOL [Concomitant]
     Indication: CARDIAC DISORDER
     Dates: start: 2009
  6. COVERSYL [Concomitant]
     Indication: CARDIAC DISORDER
     Dates: start: 2009
  7. ACETYLSALICYLIC ACID [Concomitant]
     Indication: BLOOD CHOLESTEROL
     Dates: start: 2003
  8. GLIBENCLAMIDE [Concomitant]
     Indication: BLOOD CHOLESTEROL
     Dates: start: 2005
  9. PRO-METFORMIN [Concomitant]
     Indication: BLOOD CHOLESTEROL
     Dates: start: 2005
  10. PRO-LORAZEPAM [Concomitant]
     Indication: ANXIETY
     Dates: start: 200909

REACTIONS (1)
  - Gastroenteritis [Recovered/Resolved]
